FAERS Safety Report 18181757 (Version 2)
Quarter: 2020Q3

REPORT INFORMATION
  Report Type: Report from Study
  Country: CR (occurrence: CR)
  Receive Date: 20200821
  Receipt Date: 20200924
  Transmission Date: 20201103
  Serious: Yes (Life-Threatening, Other)
  Sender: FDA-Public Use
  Company Number: NVSC2020CR230826

PATIENT
  Age: 53 Year
  Sex: Female

DRUGS (1)
  1. GALVUS MET [Suspect]
     Active Substance: METFORMIN HYDROCHLORIDE\VILDAGLIPTIN
     Indication: DIABETES MELLITUS
     Dosage: 1 DF (APPROXIMATELY 4 YEARS)
     Route: 065

REACTIONS (9)
  - Anxiety [Unknown]
  - Near death experience [Unknown]
  - Fatigue [Unknown]
  - Visual impairment [Unknown]
  - Diabetes mellitus [Unknown]
  - Confusional state [Unknown]
  - Nephrolithiasis [Unknown]
  - Nervous system disorder [Unknown]
  - Insomnia [Unknown]
